FAERS Safety Report 18752017 (Version 1)
Quarter: 2021Q1

REPORT INFORMATION
  Report Type: Report from Study
  Country: ZA (occurrence: ZA)
  Receive Date: 20210118
  Receipt Date: 20210118
  Transmission Date: 20210419
  Serious: Yes (Hospitalization)
  Sender: FDA-Public Use
  Company Number: NVSC2021ZA007002

PATIENT
  Sex: Female

DRUGS (1)
  1. CO?TAREG [Suspect]
     Active Substance: HYDROCHLOROTHIAZIDE\VALSARTAN
     Indication: HYPERTENSION
     Dosage: UNK, QD (160/12.5 MG)
     Route: 048

REACTIONS (1)
  - COVID-19 [Unknown]
